FAERS Safety Report 5107929-X (Version None)
Quarter: 2006Q3

REPORT INFORMATION
  Report Type: 
  Country: None (occurrence: None)
  Receive Date: 20060919
  Receipt Date: 20060817
  Transmission Date: 20061208
  Serious: Yes (Other)
  Sender: FDA-Public Use
  Company Number: PHEH2006US10590

PATIENT
  Age: 74 Year
  Sex: Female

DRUGS (1)
  1. FEMARA [Suspect]
     Indication: BREAST CANCER
     Dosage: 2.5 MG, QD
     Route: 048
     Dates: start: 20060214

REACTIONS (14)
  - ASTHENIA [None]
  - BACK PAIN [None]
  - BLOOD CHOLESTEROL INCREASED [None]
  - BONE PAIN [None]
  - CATARACT [None]
  - FEELING HOT [None]
  - HAIR DISORDER [None]
  - HEADACHE [None]
  - HYPERTENSION [None]
  - HYPOTRICHOSIS [None]
  - MEMORY IMPAIRMENT [None]
  - MYALGIA [None]
  - PRURITUS [None]
  - VASCULITIS [None]
